FAERS Safety Report 22106003 (Version 3)
Quarter: 2023Q2

REPORT INFORMATION
  Report Type: Spontaneous
  Country: US (occurrence: US)
  Receive Date: 20230317
  Receipt Date: 20230404
  Transmission Date: 20230721
  Serious: No
  Sender: FDA-Public Use
  Company Number: US-SA-SAC20230313001440

PATIENT
  Age: 60 Year
  Sex: Male
  Weight: 108.8 kg

DRUGS (1)
  1. DUPIXENT [Suspect]
     Active Substance: DUPILUMAB
     Indication: Nasal polyps
     Dosage: 300 MG, QOW
     Route: 058
     Dates: start: 20191113

REACTIONS (5)
  - Injection site rash [Recovered/Resolved]
  - Blood pressure abnormal [Unknown]
  - Asthma [Unknown]
  - Injection site pruritus [Recovered/Resolved]
  - Injection site reaction [Unknown]

NARRATIVE: CASE EVENT DATE: 20230216
